FAERS Safety Report 4751550-X (Version None)
Quarter: 2005Q3

REPORT INFORMATION
  Report Type: 
  Country: None (occurrence: None)
  Receive Date: 20050822
  Receipt Date: 20050822
  Transmission Date: 20060218
  Serious: Yes (Other)
  Sender: FDA-Public Use
  Company Number: None

PATIENT
  Age: 78 Year
  Sex: Male
  Weight: 91.173 kg

DRUGS (2)
  1. CELEBREX [Suspect]
     Indication: OSTEOARTHRITIS
     Dosage: OTHER CLINIC
     Route: 065
  2. BEXTRA [Suspect]
     Indication: OSTEOARTHRITIS
     Dosage: OTHER CLINIC
     Route: 065

REACTIONS (1)
  - STOMACH DISCOMFORT [None]
